FAERS Safety Report 7588617-7 (Version None)
Quarter: 2011Q3

REPORT INFORMATION
  Report Type: 
  Country: None (occurrence: None)
  Receive Date: 20110705
  Receipt Date: 20110622
  Transmission Date: 20111222
  Serious: Yes (Hospitalization)
  Sender: FDA-Public Use
  Company Number: US-JNJFOC-20110610526

PATIENT
  Sex: Male

DRUGS (1)
  1. ZYTIGA [Suspect]
     Indication: PROSTATE CANCER METASTATIC
     Route: 048
     Dates: start: 20110613, end: 20110616

REACTIONS (8)
  - DYSKINESIA [None]
  - TREMOR [None]
  - DYSPHEMIA [None]
  - INAPPROPRIATE SCHEDULE OF DRUG ADMINISTRATION [None]
  - ATRIAL FIBRILLATION [None]
  - CARDIAC DISORDER [None]
  - DYSARTHRIA [None]
  - SLEEP TALKING [None]
